FAERS Safety Report 10193254 (Version 2)
Quarter: 2016Q2

REPORT INFORMATION
  Report Type: Spontaneous
  Country: US (occurrence: US)
  Receive Date: 20140524
  Receipt Date: 20160524
  Transmission Date: 20160815
  Serious: No
  Sender: FDA-Public Use
  Company Number: US-SA-2014SA012658

PATIENT
  Age: 69 Year
  Sex: Male

DRUGS (4)
  1. LANTUS SOLOSTAR [Suspect]
     Active Substance: INSULIN GLARGINE
     Indication: TYPE 2 DIABETES MELLITUS
     Dosage: PRODUCT START DATE- 12 DAYS AGO DOSE:14 UNIT(S)
     Route: 051
  2. GLIPIZIDE. [Concomitant]
     Active Substance: GLIPIZIDE
  3. SOLOSTAR [Concomitant]
     Active Substance: DEVICE
  4. VESICARE [Concomitant]
     Active Substance: SOLIFENACIN SUCCINATE

REACTIONS (7)
  - Glycosylated haemoglobin increased [Unknown]
  - Memory impairment [Unknown]
  - Headache [Unknown]
  - Blood testosterone decreased [Unknown]
  - Blood glucose increased [Unknown]
  - Weight increased [Unknown]
  - Nocturia [Unknown]
